FAERS Safety Report 5932038-7 (Version None)
Quarter: 2008Q4

REPORT INFORMATION
  Report Type: 
  Country: None (occurrence: None)
  Receive Date: 20081027
  Receipt Date: 20081021
  Transmission Date: 20090506
  Serious: No
  Sender: FDA-Public Use
  Company Number: US-B.I. PHARMACEUTICALS,INC./RIDGEFIELD-2008-BP-16215BP

PATIENT
  Age: 91 Year
  Sex: Male

DRUGS (9)
  1. SPIRIVA [Suspect]
     Indication: CHRONIC OBSTRUCTIVE PULMONARY DISEASE
     Dosage: 18MCG
     Route: 055
  2. PLAVIX [Concomitant]
     Indication: CEREBROVASCULAR ACCIDENT PROPHYLAXIS
     Route: 048
  3. COLACE [Concomitant]
     Indication: FAECES HARD
     Route: 048
  4. WELLBUTRIN [Concomitant]
     Indication: DEPRESSION
     Route: 048
  5. ECOTRIN (BABY ASA) [Concomitant]
     Indication: PROMOTION OF PERIPHERAL CIRCULATION
     Route: 048
  6. FISH OIL [Concomitant]
     Indication: BLOOD CHOLESTEROL
     Route: 048
  7. IRON [Concomitant]
     Indication: MINERAL SUPPLEMENTATION
     Route: 048
  8. MIRALAX [Concomitant]
     Indication: INTESTINAL FUNCTIONAL DISORDER
     Route: 048
  9. CALCIUM [Concomitant]
     Indication: MINERAL SUPPLEMENTATION
     Route: 048

REACTIONS (2)
  - CONSTIPATION [None]
  - DRY MOUTH [None]
